FAERS Safety Report 9611065 (Version 2)
Quarter: 2013Q4

REPORT INFORMATION
  Report Type: Report from Study
  Country: JP (occurrence: JP)
  Receive Date: 20131009
  Receipt Date: 20131015
  Transmission Date: 20140711
  Serious: Yes (Hospitalization, Other)
  Sender: FDA-Public Use
  Company Number: JP-B.I. PHARMACEUTICALS,INC./RIDGEFIELD-2013-BI-31712NB

PATIENT
  Sex: 0
  Weight: 43.2 kg

DRUGS (1)
  1. PRAZAXA [Suspect]
     Route: 048
     Dates: end: 20130923

REACTIONS (1)
  - Respiratory arrest [Recovered/Resolved]
